FAERS Safety Report 8013903-6 (Version None)
Quarter: 2011Q4

REPORT INFORMATION
  Report Type: 
  Country: None (occurrence: None)
  Receive Date: 20111229
  Receipt Date: 20111222
  Transmission Date: 20120403
  Serious: Yes (Hospitalization)
  Sender: FDA-Public Use
  Company Number: BE-ROCHE-1023783

PATIENT
  Sex: Female
  Weight: 75 kg

DRUGS (1)
  1. OMALIZUMAB [Suspect]
     Indication: ASTHMA
     Route: 058
     Dates: start: 20110222

REACTIONS (1)
  - CARDIAC FAILURE [None]
